FAERS Safety Report 12384760 (Version 1)
Quarter: 2016Q2

REPORT INFORMATION
  Report Type: Spontaneous
  Country: US (occurrence: None)
  Receive Date: 20160518
  Receipt Date: 20160518
  Transmission Date: 20160815
  Serious: Yes (Hospitalization)
  Sender: FDA-Public Use
  Company Number: None

PATIENT
  Age: 73 Year
  Sex: Male
  Weight: 74.1 kg

DRUGS (1)
  1. QUETIAPINE. [Suspect]
     Active Substance: QUETIAPINE
     Dates: start: 20160201, end: 20160226

REACTIONS (7)
  - Hallucination [None]
  - Acute kidney injury [None]
  - Delirium [None]
  - Fluid intake reduced [None]
  - Dizziness [None]
  - Hypophagia [None]
  - Anaemia [None]

NARRATIVE: CASE EVENT DATE: 20160226
